FAERS Safety Report 5083981-5 (Version None)
Quarter: 2006Q3

REPORT INFORMATION
  Report Type: 
  Country: None (occurrence: None)
  Receive Date: 20060814
  Receipt Date: 20060802
  Transmission Date: 20061208
  Serious: Yes (Hospitalization)
  Sender: FDA-Public Use
  Company Number: 2006080930

PATIENT
  Age: 35 Year
  Sex: Female
  Weight: 51.3 kg

DRUGS (13)
  1. SUTENT [Suspect]
     Indication: RENAL CELL CARCINOMA STAGE UNSPECIFIED
     Dosage: 50 MG (50 MG, 1 IN 1 D), ORAL
     Route: 048
     Dates: start: 20060519, end: 20060604
  2. RINGERS INJECTION IN PLASTIC CONTAINER [Concomitant]
  3. ELECTROLYTE SOLUTIONS (ELECTROLYTE SOLUTONS) [Concomitant]
  4. FENTANYL (FENTANLY) [Concomitant]
  5. MORPHINE [Concomitant]
  6. PROCHLORPERAZINE MALEATE (PROCHLORPERAZINE MALEATE) [Concomitant]
  7. METOCLOPRAMIDE [Concomitant]
  8. MAGNESIUM OXIDE (MAGNESIUM OXIDE) [Concomitant]
  9. SENNOSIDE A+B (SENNOSIDE A+B) [Concomitant]
  10. LOXOPROFEN SODIUM (LOXOPROFEN SODIUM) [Concomitant]
  11. FAMOTIDINE [Concomitant]
  12. HERBAL PREPARATION INGREDIENTS UNKNOWN (HERBAL PREPARATION INGREDIENTS [Concomitant]
  13. LACTOMIN (LACTOBACILLUS SPOROGENES) [Concomitant]

REACTIONS (17)
  - ANOREXIA [None]
  - ASCITES [None]
  - BLOOD LACTATE DEHYDROGENASE INCREASED [None]
  - DEHYDRATION [None]
  - DISEASE RECURRENCE [None]
  - DYSPNOEA [None]
  - FACE OEDEMA [None]
  - FATIGUE [None]
  - HYPOXIA [None]
  - LUNG DISORDER [None]
  - METASTASES TO LUNG [None]
  - METASTASES TO LYMPH NODES [None]
  - NAUSEA [None]
  - PLEURAL EFFUSION [None]
  - RESPIRATORY FAILURE [None]
  - SUPERIOR VENA CAVAL OCCLUSION [None]
  - WEIGHT DECREASED [None]
